FAERS Safety Report 6962751-4 (Version None)
Quarter: 2010Q3

REPORT INFORMATION
  Report Type: 
  Country: None (occurrence: None)
  Receive Date: 20100902
  Receipt Date: 20100826
  Transmission Date: 20110219
  Serious: Yes (Other)
  Sender: FDA-Public Use
  Company Number: DK-BRISTOL-MYERS SQUIBB COMPANY-15264633

PATIENT

DRUGS (1)
  1. PACLITAXEL [Suspect]
     Indication: BREAST CANCER

REACTIONS (1)
  - SCLERODERMA [None]
